FAERS Safety Report 14732370 (Version 1)
Quarter: 2018Q2

REPORT INFORMATION
  Report Type: Spontaneous
  Country: US (occurrence: US)
  Receive Date: 20180409
  Receipt Date: 20180409
  Transmission Date: 20180711
  Serious: Yes (Other)
  Sender: FDA-Public Use
  Company Number: US-SUN PHARMACEUTICAL INDUSTRIES LTD-2018US-169521

PATIENT
  Age: 67 Year
  Sex: Female

DRUGS (4)
  1. BUPROPION. [Interacting]
     Active Substance: BUPROPION
     Indication: DEPRESSION
     Route: 065
  2. AMITRIPTYLINE [Suspect]
     Active Substance: AMITRIPTYLINE
     Indication: DEPRESSION
     Route: 065
  3. FLECAINIDE ACETATE. [Interacting]
     Active Substance: FLECAINIDE ACETATE
     Indication: SINUS TACHYCARDIA
  4. NOREPINEPHRINE. [Interacting]
     Active Substance: NOREPINEPHRINE
     Indication: HYPOTENSION
     Route: 065

REACTIONS (3)
  - Long QT syndrome [Unknown]
  - Arrhythmia [Unknown]
  - Drug interaction [Unknown]
